FAERS Safety Report 8840105 (Version 1)
Quarter: 2012Q4

REPORT INFORMATION
  Report Type: 
  Country: FR (occurrence: FR)
  Receive Date: 20121015
  Receipt Date: 20121015
  Transmission Date: 20130627
  Serious: Yes (Death, Life-Threatening, Hospitalization)
  Sender: FDA-Public Use
  Company Number: FR-BRISTOL-MYERS SQUIBB COMPANY-17022575

PATIENT
  Age: 39 Year
  Sex: Male

DRUGS (3)
  1. TAXOL [Suspect]
     Indication: TESTIS CANCER
     Dates: start: 20110905, end: 20110906
  2. CISPLATIN [Suspect]
     Indication: TESTIS CANCER
     Dates: start: 20110906, end: 20110906
  3. IFOSFAMIDE [Suspect]
     Indication: TESTIS CANCER
     Dates: start: 20110906, end: 20110906

REACTIONS (2)
  - Septic shock [Fatal]
  - Febrile bone marrow aplasia [Fatal]
